FAERS Safety Report 13147303 (Version 3)
Quarter: 2018Q1

REPORT INFORMATION
  Report Type: Report from Study
  Country: US (occurrence: US)
  Receive Date: 20170124
  Receipt Date: 20180118
  Transmission Date: 20180508
  Serious: No
  Sender: FDA-Public Use
  Company Number: US-AMGEN-USASL2016162106

PATIENT
  Sex: Female

DRUGS (1)
  1. REPATHA [Suspect]
     Active Substance: EVOLOCUMAB
     Indication: PRODUCT USED FOR UNKNOWN INDICATION
     Dosage: 140 MG, Q2WK
     Route: 065

REACTIONS (6)
  - Injection site mass [Unknown]
  - Fatigue [Unknown]
  - Injection site discolouration [Unknown]
  - Diplopia [Unknown]
  - Upper-airway cough syndrome [Unknown]
  - Cough [Unknown]

NARRATIVE: CASE EVENT DATE: 2016
